FAERS Safety Report 7965079-9 (Version None)
Quarter: 2011Q4

REPORT INFORMATION
  Report Type: 
  Country: None (occurrence: None)
  Receive Date: 20111208
  Receipt Date: 20111128
  Transmission Date: 20120403
  Serious: Yes (Hospitalization)
  Sender: FDA-Public Use
  Company Number: US-BAYER-2011-053071

PATIENT
  Age: 25 Year
  Sex: Female
  Weight: 59.41 kg

DRUGS (7)
  1. YAZ [Suspect]
     Indication: CONTRACEPTION
     Dosage: UNK
     Dates: start: 20080301, end: 20100201
  2. ADVAIR DISKUS 100/50 [Concomitant]
     Indication: ASTHMA
     Dosage: UNK UNK, PRN
     Dates: start: 20090901
  3. MULTI-VITAMIN [Concomitant]
     Dosage: UNK UNK, QD
     Route: 048
  4. ASTELIN [Concomitant]
     Indication: MULTIPLE ALLERGIES
     Dosage: 137 MCG/24HR, QD
     Dates: start: 20090901
  5. YAZ [Suspect]
     Indication: ACNE
  6. CETIRIZINE HCL [Concomitant]
     Indication: MULTIPLE ALLERGIES
     Dosage: 10 MG, PRN
     Route: 048
     Dates: start: 20090801, end: 20090901
  7. PRILOSEC [Concomitant]
     Indication: ABDOMINAL PAIN UPPER
     Dosage: 20 MG, QD
     Route: 048
     Dates: start: 20090901

REACTIONS (5)
  - PAIN [None]
  - CHOLECYSTITIS CHRONIC [None]
  - CHOLECYSTITIS [None]
  - INJURY [None]
  - BILIARY DYSKINESIA [None]
